FAERS Safety Report 17677012 (Version 6)
Quarter: 2023Q1

REPORT INFORMATION
  Report Type: Report from Study
  Country: TW (occurrence: FR)
  Receive Date: 20200416
  Receipt Date: 20230223
  Transmission Date: 20230418
  Serious: Yes (Hospitalization, Other)
  Sender: FDA-Public Use
  Company Number: PHHY2014TW166180

PATIENT
  Age: 51 Year
  Sex: Female

DRUGS (80)
  1. NEORAL [Suspect]
     Active Substance: CYCLOSPORINE
     Indication: Transplant
     Dosage: 200 MG
     Route: 065
     Dates: start: 20111121
  2. NEORAL [Suspect]
     Active Substance: CYCLOSPORINE
     Dosage: 150 MG
     Route: 065
     Dates: start: 20111228
  3. NEORAL [Suspect]
     Active Substance: CYCLOSPORINE
     Dosage: 100 MG
     Route: 065
     Dates: start: 20120208
  4. NEORAL [Suspect]
     Active Substance: CYCLOSPORINE
     Dosage: 50 MG
     Route: 065
     Dates: start: 20121114
  5. DEXAMETHASONE [Suspect]
     Active Substance: DEXAMETHASONE
     Indication: Plasma cell myeloma
     Dosage: 20 MG, QW
     Route: 048
     Dates: start: 20190516, end: 20190903
  6. DEXAMETHASONE [Suspect]
     Active Substance: DEXAMETHASONE
     Dosage: 20 MG, QW
     Route: 048
     Dates: start: 20191207, end: 20191225
  7. DEXAMETHASONE [Suspect]
     Active Substance: DEXAMETHASONE
     Dosage: 20 MG, QD
     Route: 048
     Dates: start: 20191226, end: 20191226
  8. DEXAMETHASONE [Suspect]
     Active Substance: DEXAMETHASONE
     Dosage: 20 MG, QW
     Route: 048
     Dates: start: 20191227, end: 20200112
  9. DEXAMETHASONE [Suspect]
     Active Substance: DEXAMETHASONE
     Dosage: 10 MG, QW
     Route: 048
     Dates: start: 20200113, end: 20200207
  10. DEXAMETHASONE [Suspect]
     Active Substance: DEXAMETHASONE
     Dosage: 10 MG, QW
     Route: 048
     Dates: start: 20200207
  11. REVLIMID [Suspect]
     Active Substance: LENALIDOMIDE
     Indication: Plasma cell myeloma
     Dosage: 25 MG, QD
     Route: 048
     Dates: start: 20190516, end: 20190606
  12. REVLIMID [Suspect]
     Active Substance: LENALIDOMIDE
     Dosage: 25 MG, QD
     Route: 048
     Dates: start: 20190613, end: 20190704
  13. REVLIMID [Suspect]
     Active Substance: LENALIDOMIDE
     Dosage: 15 MG, QD
     Route: 048
     Dates: start: 20190711, end: 20190801
  14. REVLIMID [Suspect]
     Active Substance: LENALIDOMIDE
     Dosage: 25 MG, QD
     Route: 048
     Dates: start: 20190808, end: 20190829
  15. REVLIMID [Suspect]
     Active Substance: LENALIDOMIDE
     Dosage: 15 MG, QD
     Route: 048
     Dates: start: 20191211, end: 20191231
  16. REVLIMID [Suspect]
     Active Substance: LENALIDOMIDE
     Dosage: 20 MG, QD
     Route: 048
     Dates: start: 20191226, end: 20191226
  17. REVLIMID [Suspect]
     Active Substance: LENALIDOMIDE
     Dosage: 15 MG, QD
     Route: 048
     Dates: start: 20200113, end: 20200202
  18. REVLIMID [Suspect]
     Active Substance: LENALIDOMIDE
     Dosage: 10 MG, QD
     Route: 065
     Dates: start: 20200227, end: 20200318
  19. REVLIMID [Suspect]
     Active Substance: LENALIDOMIDE
     Dosage: 10 MG, QD
     Route: 048
     Dates: start: 20200330, end: 20200520
  20. REVLIMID [Suspect]
     Active Substance: LENALIDOMIDE
     Dosage: 10 MG, QD
     Route: 048
     Dates: start: 20200520
  21. REVLIMID [Suspect]
     Active Substance: LENALIDOMIDE
     Dosage: 5 MG, QD
     Route: 048
     Dates: start: 20191007, end: 20191028
  22. REVLIMID [Suspect]
     Active Substance: LENALIDOMIDE
     Dosage: UNK
     Route: 048
     Dates: start: 20190904, end: 20191206
  23. REVLIMID [Suspect]
     Active Substance: LENALIDOMIDE
     Dosage: UNK
     Route: 048
     Dates: start: 20191111, end: 20191202
  24. REVLIMID [Suspect]
     Active Substance: LENALIDOMIDE
     Dosage: 5 MG, QD
     Route: 048
     Dates: start: 20190904, end: 20190926
  25. REVLIMID [Suspect]
     Active Substance: LENALIDOMIDE
     Dosage: UNK
     Route: 048
     Dates: start: 20201126, end: 20201209
  26. REVLIMID [Suspect]
     Active Substance: LENALIDOMIDE
     Dosage: 5 MG, QD
     Route: 048
     Dates: start: 20210325, end: 20210414
  27. REVLIMID [Suspect]
     Active Substance: LENALIDOMIDE
     Dosage: 10 MG, QD
     Route: 048
     Dates: start: 20201210, end: 20201230
  28. REVLIMID [Suspect]
     Active Substance: LENALIDOMIDE
     Dosage: 5 MG, QD
     Route: 048
     Dates: start: 20210128, end: 20210217
  29. REVLIMID [Suspect]
     Active Substance: LENALIDOMIDE
     Dosage: 5 MG, QD
     Route: 048
     Dates: start: 20210422, end: 20210512
  30. ACETAMINOPHEN [Concomitant]
     Active Substance: ACETAMINOPHEN
     Indication: Upper respiratory tract infection
     Dosage: 1 TAB, PRN
     Route: 048
     Dates: start: 20111205, end: 20111212
  31. ACETAMINOPHEN [Concomitant]
     Active Substance: ACETAMINOPHEN
     Dosage: 500 MG, Q8H PRN
     Route: 048
     Dates: start: 20120507, end: 20120509
  32. ACETAMINOPHEN [Concomitant]
     Active Substance: ACETAMINOPHEN
     Dosage: 500 MG, Q6H PRN
     Route: 048
     Dates: start: 20130418, end: 20130425
  33. ALLEGRA [Concomitant]
     Active Substance: FEXOFENADINE HYDROCHLORIDE
     Indication: Upper respiratory tract infection
     Dosage: 60 MG, BID
     Route: 048
     Dates: start: 20111205, end: 20111212
  34. AMPICILLIN [Concomitant]
     Active Substance: AMPICILLIN
     Indication: Product used for unknown indication
     Dosage: 500 MG, Q6H
     Route: 048
     Dates: start: 20120220, end: 20120227
  35. ATORVASTATIN [Concomitant]
     Active Substance: ATORVASTATIN
     Indication: Product used for unknown indication
     Dosage: 10 MG, QD
     Route: 048
     Dates: start: 20121212, end: 20130408
  36. BACIDE [Concomitant]
     Indication: Infection prophylaxis
     Dosage: 1 TAB, Q2D
     Route: 065
     Dates: start: 20111120, end: 20111124
  37. BACIDE [Concomitant]
     Dosage: 1 TAB, QD
     Route: 065
     Dates: start: 20111125, end: 20120104
  38. VITAMIN B COMPLEX [Concomitant]
     Active Substance: CYANOCOBALAMIN\DEXPANTHENOL\NIACINAMIDE\PYRIDOXINE HYDROCHLORIDE\RIBOFLAVIN 5^-PHOSPHATE SODIUM\THIA
     Indication: Mouth ulceration
     Dosage: 2 TAB, QD
     Route: 048
     Dates: start: 20120912, end: 20130119
  39. VITAMIN B COMPLEX [Concomitant]
     Active Substance: CYANOCOBALAMIN\DEXPANTHENOL\NIACINAMIDE\PYRIDOXINE HYDROCHLORIDE\RIBOFLAVIN 5^-PHOSPHATE SODIUM\THIA
     Dosage: 1 TAB, QD
     Route: 065
     Dates: start: 20130313, end: 20130610
  40. VITAMIN B COMPLEX [Concomitant]
     Active Substance: CYANOCOBALAMIN\DEXPANTHENOL\NIACINAMIDE\PYRIDOXINE HYDROCHLORIDE\RIBOFLAVIN 5^-PHOSPHATE SODIUM\THIA
     Dosage: 1 TAB, QD
     Route: 065
     Dates: start: 20130807
  41. BROWN MIXTURE [Concomitant]
     Indication: Upper respiratory tract infection
     Dosage: 10 ML, TID
     Route: 048
     Dates: start: 20111205, end: 20111212
  42. BROWN MIXTURE [Concomitant]
     Dosage: 10 ML, TID
     Route: 048
     Dates: start: 20120108, end: 20120115
  43. BROWN MIXTURE [Concomitant]
     Dosage: 10 ML, TID
     Route: 048
     Dates: start: 20130311, end: 20130318
  44. BROWN MIXTURE [Concomitant]
     Dosage: 5 ML, TID
     Route: 048
     Dates: start: 20140206, end: 20140227
  45. CARVEDILOL [Concomitant]
     Active Substance: CARVEDILOL
     Indication: Hypertension
     Dosage: 25 MG, QD
     Route: 048
     Dates: start: 20111124, end: 20120103
  46. CARVEDILOL [Concomitant]
     Active Substance: CARVEDILOL
     Dosage: 6.25 MG, QD
     Route: 048
     Dates: start: 20120104, end: 20120620
  47. CARVEDILOL [Concomitant]
     Active Substance: CARVEDILOL
     Dosage: 6.25 MG, QD
     Route: 048
     Dates: start: 20121017, end: 20121114
  48. CEFADROXIL [Concomitant]
     Active Substance: CEFADROXIL
     Indication: Product used for unknown indication
     Dosage: 500 MG, Q12H
     Route: 048
     Dates: start: 20120507, end: 20120510
  49. CIPROFLOXACIN [Concomitant]
     Active Substance: CIPROFLOXACIN
     Indication: Product used for unknown indication
     Dosage: 400 MG, QD
     Route: 042
     Dates: start: 20120106, end: 20120109
  50. DEXAMETHASONE ORAL PASTE [Concomitant]
     Indication: Mouth ulceration
     Dosage: UNK UNK, BID
     Route: 061
     Dates: start: 20120912, end: 20121114
  51. DOXAZOSIN MESYLATE [Concomitant]
     Active Substance: DOXAZOSIN MESYLATE
     Indication: Hypertension
     Dosage: 4 MG, QD
     Route: 048
     Dates: start: 20111124, end: 20111126
  52. LEVOTHYROXINE [Concomitant]
     Active Substance: LEVOTHYROXINE
     Indication: Hypothyroidism
     Dosage: 0.1 MG, QD
     Route: 048
     Dates: start: 20111121, end: 20121114
  53. LEVOTHYROXINE [Concomitant]
     Active Substance: LEVOTHYROXINE
     Dosage: 0.1 MG, QD
     Route: 048
     Dates: start: 20130206, end: 20130310
  54. LEVOTHYROXINE [Concomitant]
     Active Substance: LEVOTHYROXINE
     Dosage: 0.2 UNK, UNK
     Route: 048
     Dates: start: 20130311
  55. LORAZEPAM [Concomitant]
     Active Substance: LORAZEPAM
     Indication: Product used for unknown indication
     Dosage: 1 MG, QN
     Route: 048
     Dates: start: 20131128
  56. PARMASON [Concomitant]
     Indication: Infection prophylaxis
     Dosage: BID
     Route: 002
     Dates: start: 20111205, end: 20111212
  57. PARMASON [Concomitant]
     Dosage: BID
     Route: 002
     Dates: start: 20120912, end: 20130318
  58. PARMASON [Concomitant]
     Dosage: BID
     Route: 002
     Dates: start: 20130418
  59. NYSTATIN [Concomitant]
     Active Substance: NYSTATIN
     Indication: Infection prophylaxis
     Dosage: 5000000 U, QID
     Route: 048
     Dates: start: 20111130, end: 20111201
  60. MEPERIDINE [Concomitant]
     Active Substance: MEPERIDINE
     Indication: Product used for unknown indication
     Dosage: 35 MG, Q12H PRN
     Route: 042
     Dates: start: 20120106, end: 20120109
  61. MEPERIDINE [Concomitant]
     Active Substance: MEPERIDINE
     Dosage: UNK
     Route: 065
  62. NORVASC [Concomitant]
     Active Substance: AMLODIPINE BESYLATE
     Indication: Hypertension
     Dosage: 5 MG, QD
     Route: 048
     Dates: start: 20111122, end: 20111228
  63. NORVASC [Concomitant]
     Active Substance: AMLODIPINE BESYLATE
     Dosage: 5 MG, QD
     Route: 048
     Dates: start: 20121114, end: 20130306
  64. NORVASC [Concomitant]
     Active Substance: AMLODIPINE BESYLATE
     Dosage: 5 MG, QD
     Route: 048
     Dates: start: 20130418, end: 20140619
  65. PANTOPRAZOLE [Concomitant]
     Active Substance: PANTOPRAZOLE
     Indication: Prophylaxis
     Dosage: 40 MG, QD
     Route: 048
     Dates: start: 20111123, end: 20120308
  66. PANTOPRAZOLE [Concomitant]
     Active Substance: PANTOPRAZOLE
     Dosage: UNK
     Route: 065
  67. ROSUVASTATIN [Concomitant]
     Active Substance: ROSUVASTATIN
     Indication: Product used for unknown indication
     Dosage: 10 MG, QD
     Route: 048
     Dates: start: 20120502, end: 20120725
  68. PRAVASTATIN [Concomitant]
     Active Substance: PRAVASTATIN
     Indication: Product used for unknown indication
     Dosage: 40 MG, QN
     Route: 048
     Dates: start: 20140717
  69. OLMESARTAN MEDOXOMIL [Concomitant]
     Active Substance: OLMESARTAN MEDOXOMIL
     Indication: Hypertension
     Dosage: 20 MG, QD
     Route: 048
     Dates: start: 20140717
  70. TRANDATE [Concomitant]
     Active Substance: LABETALOL HYDROCHLORIDE
     Indication: Hypertension
     Dosage: 25 MG, Q4H PRN
     Route: 042
     Dates: start: 20111123, end: 20111128
  71. ULTRACET [Concomitant]
     Active Substance: ACETAMINOPHEN\TRAMADOL HYDROCHLORIDE
     Indication: Wound complication
     Dosage: 1 DF, BID (1 TAB, BID HS)
     Route: 065
     Dates: start: 20111125, end: 20111203
  72. ULTRACET [Concomitant]
     Active Substance: ACETAMINOPHEN\TRAMADOL HYDROCHLORIDE
     Dosage: 1 DF, Q6H (1 TAB, Q6H PR)
     Route: 065
     Dates: start: 20111215, end: 20111222
  73. TRIAMCINOLONE ORAL JEL [Concomitant]
     Indication: Mouth ulceration
     Dosage: UNK
     Route: 061
     Dates: start: 20140923
  74. VYTORIN [Concomitant]
     Active Substance: EZETIMIBE\SIMVASTATIN
     Indication: Product used for unknown indication
     Dosage: 1 TAB, QN
     Route: 048
     Dates: start: 20120725, end: 20140619
  75. VALCYTE [Concomitant]
     Active Substance: VALGANCICLOVIR HYDROCHLORIDE
     Indication: Infection prophylaxis
     Dosage: 450 MG, Q2D
     Route: 048
     Dates: start: 20111120, end: 20111123
  76. VALCYTE [Concomitant]
     Active Substance: VALGANCICLOVIR HYDROCHLORIDE
     Dosage: 450 MG, QD
     Route: 048
     Dates: start: 20111124, end: 20120105
  77. ZOLPIDEM TARTRATE [Concomitant]
     Active Substance: ZOLPIDEM TARTRATE
     Indication: Insomnia
     Dosage: 10 MG, QN
     Route: 048
     Dates: start: 20120208, end: 20120404
  78. ZOPICLONE [Concomitant]
     Active Substance: ZOPICLONE
     Indication: Insomnia
     Dosage: 7.5 MG, HS
     Route: 048
     Dates: start: 20111121, end: 20120208
  79. ZOPICLONE [Concomitant]
     Active Substance: ZOPICLONE
     Dosage: 7.5 MG, HS
     Route: 048
     Dates: start: 20120412, end: 20121114
  80. ZOPICLONE [Concomitant]
     Active Substance: ZOPICLONE
     Dosage: 7.5 MG, HS
     Route: 048
     Dates: start: 20130109, end: 20131031

REACTIONS (12)
  - Spinal disorder [Recovered/Resolved]
  - Neutropenia [Recovered/Resolved]
  - Thrombocytopenia [Recovering/Resolving]
  - Productive cough [Recovered/Resolved]
  - Haematotoxicity [Not Recovered/Not Resolved]
  - Cough [Recovered/Resolved]
  - Cough [Not Recovered/Not Resolved]
  - Anaemia [Not Recovered/Not Resolved]
  - Neutropenia [Recovered/Resolved]
  - Neutropenia [Recovered/Resolved]
  - Thrombocytopenia [Recovered/Resolved]
  - Vaginal infection [Not Recovered/Not Resolved]

NARRATIVE: CASE EVENT DATE: 20130206
